FAERS Safety Report 5196673-9 (Version None)
Quarter: 2007Q1

REPORT INFORMATION
  Report Type: 
  Country: None (occurrence: None)
  Receive Date: 20070103
  Receipt Date: 20061228
  Transmission Date: 20070707
  Serious: Yes (Other)
  Sender: FDA-Public Use
  Company Number: PHNU2006DE03436

PATIENT
  Sex: Female

DRUGS (3)
  1. TRILEPTAL [Suspect]
     Indication: EPILEPSY
     Dosage: 900 MG/D (0.5-0-1)
     Route: 048
  2. ORFIRIL - SLOW RELEASE ^DESITIN^ [Suspect]
     Indication: EPILEPSY
     Dosage: 2000 MG/D (1000-0-1000)
     Route: 048
  3. KEPPRA [Suspect]
     Indication: EPILEPSY
     Dosage: 1500 MG/D (750-0-750)
     Dates: start: 20060401

REACTIONS (5)
  - CONVULSION [None]
  - FALL [None]
  - FATIGUE [None]
  - OSTEOPOROSIS [None]
  - SPINAL FRACTURE [None]
